FAERS Safety Report 4635889-4 (Version None)
Quarter: 2005Q2

REPORT INFORMATION
  Report Type: 
  Country: None (occurrence: None)
  Receive Date: 20050415
  Receipt Date: 20050408
  Transmission Date: 20051028
  Serious: Yes (Other)
  Sender: FDA-Public Use
  Company Number: CA-GLAXOSMITHKLINE-A0553870A

PATIENT
  Age: 81 Year
  Sex: Female

DRUGS (4)
  1. AVANDIA [Suspect]
     Indication: DRUG USE FOR UNKNOWN INDICATION
     Dosage: 4MG PER DAY
     Route: 048
  2. GLYBURIDE [Concomitant]
  3. LIPITOR [Concomitant]
  4. METFORMIN HCL [Concomitant]

REACTIONS (4)
  - CARDIOMEGALY [None]
  - FATIGUE [None]
  - MYOCARDIAL INFARCTION [None]
  - OEDEMA PERIPHERAL [None]
